FAERS Safety Report 11789244 (Version 4)
Quarter: 2016Q2

REPORT INFORMATION
  Report Type: Spontaneous
  Country: US (occurrence: US)
  Receive Date: 20151201
  Receipt Date: 20160418
  Transmission Date: 20160815
  Serious: No
  Sender: FDA-Public Use
  Company Number: US-VIFOR (INTERNATIONAL) INC.-VIT-2015-03190

PATIENT
  Sex: Female
  Weight: 49 kg

DRUGS (11)
  1. TRAMADOL. [Concomitant]
     Active Substance: TRAMADOL
     Route: 048
  2. MIRCERA [Suspect]
     Active Substance: METHOXY POLYETHYLENE GLYCOL-EPOETIN BETA
     Indication: HAEMOGLOBIN DECREASED
     Route: 042
     Dates: start: 20150901, end: 20151027
  3. VITAMIN D3 [Concomitant]
     Active Substance: CHOLECALCIFEROL
  4. VITAMIN D2 [Concomitant]
     Active Substance: ERGOCALCIFEROL
     Route: 048
  5. VITAMIN D [Concomitant]
     Active Substance: CHOLECALCIFEROL
     Route: 048
     Dates: start: 20151217
  6. AMLODIPINE [Concomitant]
     Active Substance: AMLODIPINE BESYLATE
     Route: 048
  7. ASPIRIN. [Concomitant]
     Active Substance: ASPIRIN
     Route: 048
  8. EPOGEN [Concomitant]
     Active Substance: ERYTHROPOIETIN
     Dates: start: 20150112
  9. VITAMIN D [Concomitant]
     Active Substance: CHOLECALCIFEROL
     Route: 048
  10. METOPROLOL SUCCINATE. [Concomitant]
     Active Substance: METOPROLOL SUCCINATE
     Route: 048
  11. MIRCERA [Suspect]
     Active Substance: METHOXY POLYETHYLENE GLYCOL-EPOETIN BETA
     Indication: NEPHROGENIC ANAEMIA

REACTIONS (5)
  - Hypersensitivity [Recovered/Resolved]
  - Blister [Recovered/Resolved]
  - Scab [Recovered/Resolved]
  - Rash [Recovered/Resolved]
  - Pruritus [Recovered/Resolved]

NARRATIVE: CASE EVENT DATE: 2015
